FAERS Safety Report 14129369 (Version 1)
Quarter: 2017Q4

REPORT INFORMATION
  Report Type: Spontaneous
  Country: HU (occurrence: HU)
  Receive Date: 20171026
  Receipt Date: 20171026
  Transmission Date: 20180321
  Serious: Yes (Death, Other)
  Sender: FDA-Public Use
  Company Number: HU-PFIZER INC-2017089737

PATIENT
  Age: 79 Year
  Sex: Female

DRUGS (6)
  1. SUTENT [Suspect]
     Active Substance: SUNITINIB MALATE
     Dosage: 2ND CYCLE, 25 MG DAILY 1X, CYCLIC, ACCORDING TO 4/2 SCHEMA
     Route: 048
     Dates: start: 20170316, end: 20170413
  2. SUTENT [Suspect]
     Active Substance: SUNITINIB MALATE
     Dosage: 5TH CYCLE, 25 MG DAILY, CYCLIC, ACCORDING TO 2/1 SCHEMA
     Route: 048
     Dates: start: 20170906, end: 20171011
  3. SUTENT [Suspect]
     Active Substance: SUNITINIB MALATE
     Dosage: 3RD CYCLE, 25 MG DAILY 1X, CYCLIC, ACCORDING TO 4/2 SCHEMA
     Route: 048
     Dates: start: 20170524, end: 20170621
  4. SUTENT [Suspect]
     Active Substance: SUNITINIB MALATE
     Dosage: 4TH CYCLE, 25 MG DAILY 1X, CYCLIC, ACCORDING TO 4/2 SCHEMA
     Route: 048
     Dates: start: 20170705, end: 20170802
  5. TENOX [Concomitant]
     Indication: HYPERTENSION
     Dosage: UNK, DAILY
     Route: 048
  6. SUTENT [Suspect]
     Active Substance: SUNITINIB MALATE
     Indication: RENAL CANCER METASTATIC
     Dosage: 1ST CYCLE, 25 MG DAILY 1X, CYCLIC, ACCORDING TO 4/2 SCHEMA
     Route: 048
     Dates: start: 20170201, end: 20170228

REACTIONS (10)
  - Cardiac arrest [Fatal]
  - Fatigue [Not Recovered/Not Resolved]
  - Neoplasm progression [Unknown]
  - Anaemia [Not Recovered/Not Resolved]
  - Platelet count decreased [Recovered/Resolved]
  - Diarrhoea [Recovered/Resolved]
  - Asthenia [Not Recovered/Not Resolved]
  - White blood cell count decreased [Recovered/Resolved]
  - Decreased appetite [Not Recovered/Not Resolved]
  - Weight decreased [Recovering/Resolving]

NARRATIVE: CASE EVENT DATE: 2017
